FAERS Safety Report 15323437 (Version 2)
Quarter: 2019Q1

REPORT INFORMATION
  Report Type: Spontaneous
  Country: US (occurrence: US)
  Receive Date: 20180827
  Receipt Date: 20190129
  Transmission Date: 20190417
  Serious: No
  Sender: FDA-Public Use
  Company Number: US-SA-2018SA236386

PATIENT
  Sex: Male

DRUGS (10)
  1. PRALUENT [Suspect]
     Active Substance: ALIROCUMAB
     Dosage: UNK
     Route: 058
  2. PRADAXA [Concomitant]
     Active Substance: DABIGATRAN ETEXILATE MESYLATE
     Dosage: 150 MG, BID
  3. DEMADEX [Concomitant]
     Active Substance: TORSEMIDE
     Dosage: 60 MG, QD
  4. ALIROCUMAB PREFILLED PEN [Suspect]
     Active Substance: ALIROCUMAB
     Route: 058
  5. METFORMIN [Concomitant]
     Active Substance: METFORMIN HYDROCHLORIDE
     Dosage: 500 UNIT: UNK, BID
  6. COREG [Concomitant]
     Active Substance: CARVEDILOL
     Dosage: 6.25 UNIT: UNK, BID
  7. JARDIANCE [Concomitant]
     Active Substance: EMPAGLIFLOZIN
     Dosage: 10 MG
  8. LISINOPRIL. [Concomitant]
     Active Substance: LISINOPRIL
     Dosage: 20; UNIT: UNK, QD
  9. RANEXA [Concomitant]
     Active Substance: RANOLAZINE
     Dosage: 500 MG, BID
  10. COQ10 [UBIDECARENONE] [Concomitant]
     Active Substance: UBIDECARENONE

REACTIONS (5)
  - Insomnia [Not Recovered/Not Resolved]
  - Blood glucose increased [Recovering/Resolving]
  - Muscle spasms [Recovering/Resolving]
  - Dyskinesia [Not Recovered/Not Resolved]
  - Asthenia [Recovering/Resolving]
